FAERS Safety Report 23564476 (Version 1)
Quarter: 2024Q1

REPORT INFORMATION
  Report Type: Spontaneous
  Country: FR (occurrence: FR)
  Receive Date: 20240226
  Receipt Date: 20240226
  Transmission Date: 20240409
  Serious: Yes (Life-Threatening)
  Sender: FDA-Public Use
  Company Number: None

PATIENT
  Age: 75 Year
  Sex: Male
  Weight: 80.5 kg

DRUGS (5)
  1. PRADAXA [Suspect]
     Active Substance: DABIGATRAN ETEXILATE MESYLATE
     Indication: Thrombosis prophylaxis
     Route: 048
     Dates: end: 20231224
  2. TELMISARTAN [Concomitant]
     Active Substance: TELMISARTAN
     Indication: Product used for unknown indication
  3. BISOPROLOL FUMARATE [Concomitant]
     Active Substance: BISOPROLOL FUMARATE
     Indication: Product used for unknown indication
  4. ROSUVASTATIN [Concomitant]
     Active Substance: ROSUVASTATIN
     Indication: Product used for unknown indication
  5. AMLODIPINE [Concomitant]
     Active Substance: AMLODIPINE BESYLATE
     Indication: Product used for unknown indication

REACTIONS (3)
  - Intracardiac thrombus [Recovered/Resolved]
  - Drug ineffective [Recovered/Resolved]
  - Intestinal ischaemia [Recovered/Resolved]

NARRATIVE: CASE EVENT DATE: 20231224
